FAERS Safety Report 25515848 (Version 2)
Quarter: 2025Q3

REPORT INFORMATION
  Report Type: Spontaneous
  Country: US (occurrence: US)
  Receive Date: 20250704
  Receipt Date: 20250716
  Transmission Date: 20251020
  Serious: No
  Sender: LEO PHARM
  Company Number: US-LEO Pharma-381093

PATIENT
  Age: 55 Year
  Sex: Male

DRUGS (1)
  1. ADBRY [Suspect]
     Active Substance: TRALOKINUMAB-LDRM
     Indication: Dermatitis atopic
     Dosage: TREATMENT ONGOING
     Route: 058
     Dates: start: 202307

REACTIONS (4)
  - Pruritus [Unknown]
  - Drug ineffective [Unknown]
  - Dry skin [Unknown]
  - Skin exfoliation [Unknown]
